FAERS Safety Report 5655578-7 (Version None)
Quarter: 2008Q1

REPORT INFORMATION
  Report Type: 
  Country: None (occurrence: None)
  Receive Date: 20080212
  Receipt Date: 20070906
  Transmission Date: 20080703
  Serious: Yes (Other)
  Sender: FDA-Public Use
  Company Number: MC200700521

PATIENT
  Age: 62 Year
  Sex: Male
  Weight: 115.2 kg

DRUGS (8)
  1. ANGIOMAX, ANGIOX(BIVALIDURIN) INJECTION [Suspect]
     Indication: PERCUTANEOUS CORONARY INTERVENTION
     Dosage: 0.75 MG/KG, BOLUS, IV BOLUS
     Route: 040
     Dates: start: 20070605, end: 20070605
  2. ANGIOMAX [Suspect]
     Dosage: 1.75 MG/KG, HR, INTRAVENOUS
     Route: 042
     Dates: start: 20070605, end: 20070605
  3. OPTIRAY 350 /01731901/(IODINE, IOVERSOL) [Suspect]
     Dosage: INTRAVENOUS
     Route: 042
     Dates: start: 20070605
  4. FENTANYL [Suspect]
     Dosage: 50 UG, SINGLE, INTRAVENOUS ; SECOND DOSE, SINGLE, INTRAVENOUS
     Route: 042
     Dates: start: 20070605
  5. FENTANYL [Suspect]
     Dosage: 50 UG, SINGLE, INTRAVENOUS ; SECOND DOSE, SINGLE, INTRAVENOUS
     Route: 042
     Dates: start: 20070605
  6. VERSED [Suspect]
  7. PLAVIX [Concomitant]
  8. ASPIRIN [Concomitant]

REACTIONS (1)
  - ANAPHYLACTIC REACTION [None]
